FAERS Safety Report 7562416-4 (Version None)
Quarter: 2011Q2

REPORT INFORMATION
  Report Type: 
  Country: None (occurrence: None)
  Receive Date: 20110622
  Receipt Date: 20110615
  Transmission Date: 20111010
  Serious: Yes (Hospitalization, Disabling, Other)
  Sender: FDA-Public Use
  Company Number: AR-MEDIMMUNE-MEDI-0013283

PATIENT
  Sex: Male
  Weight: 0.958 kg

DRUGS (5)
  1. ERGOCALCIFEROL [Concomitant]
     Dates: start: 20110430
  2. FERROUS SULFATE TAB [Concomitant]
     Dates: start: 20110519
  3. ASCORBIC ACID [Concomitant]
     Dates: start: 20110430
  4. SYNAGIS [Suspect]
     Route: 030
  5. RETINOL [Concomitant]
     Dates: start: 20110430

REACTIONS (2)
  - BRONCHIOLITIS [None]
  - FEEDING DISORDER [None]
